FAERS Safety Report 10705068 (Version 3)
Quarter: 2015Q3

REPORT INFORMATION
  Report Type: Spontaneous
  Country: KR (occurrence: KR)
  Receive Date: 20150112
  Receipt Date: 20150724
  Transmission Date: 20151125
  Serious: Yes (Hospitalization, Other)
  Sender: FDA-Public Use
  Company Number: KR-OTSUKA-US-2015-10081

PATIENT

DRUGS (20)
  1. DACOGEN [Suspect]
     Active Substance: DECITABINE
     Indication: ACUTE MYELOID LEUKAEMIA
     Dosage: 20 MG/M2, 1 IN
     Route: 042
     Dates: start: 20141003, end: 20141007
  2. VANCOMYCIN HCL [Concomitant]
     Active Substance: VANCOMYCIN HYDROCHLORIDE
     Indication: INFECTIVE SPONDYLITIS
     Dosage: 750 MG MILLIGRAM(S), 2 IN
     Route: 042
     Dates: start: 20141002, end: 20141014
  3. VANCOMYCIN HCL [Concomitant]
     Active Substance: VANCOMYCIN HYDROCHLORIDE
     Dosage: 700 MG MILLIGRAM(S), 2 IN
     Route: 042
     Dates: start: 20141031, end: 20141110
  4. ZOVIRAX [Concomitant]
     Active Substance: ACYCLOVIR
     Indication: PROPHYLAXIS
     Dosage: 200 MG, 2 IN
     Route: 048
     Dates: start: 20141006, end: 20141008
  5. DACOGEN [Suspect]
     Active Substance: DECITABINE
     Dosage: 20 MG/M2, 1 IN
     Route: 042
     Dates: start: 20141031, end: 20141104
  6. VANCOMYCIN HCL [Concomitant]
     Active Substance: VANCOMYCIN HYDROCHLORIDE
     Dosage: 500 MG MILLIGRAM(S), 2 IN
     Route: 042
     Dates: start: 20141028, end: 20141030
  7. VANCOMYCIN HCL [Concomitant]
     Active Substance: VANCOMYCIN HYDROCHLORIDE
     Dosage: 900 MG MILLIGRAM(S), 1 IN
     Route: 042
     Dates: start: 20141129, end: 20141130
  8. VANCOMYCIN HCL [Concomitant]
     Active Substance: VANCOMYCIN HYDROCHLORIDE
     Dosage: 750 MG MILLIGRAM(S), 2 IN
     Route: 042
     Dates: start: 20141114, end: 20141127
  9. CYTOPAN [Concomitant]
     Indication: INFECTIVE SPONDYLITIS
     Dosage: 250 MG, 2 IN
     Route: 048
     Dates: start: 20141002, end: 20141014
  10. ITRACONAZOLE. [Concomitant]
     Active Substance: ITRACONAZOLE
     Indication: INFECTIVE SPONDYLITIS
     Dosage: 100 MG, 2 IN
     Route: 048
     Dates: start: 20141110, end: 20141113
  11. COMBICIN [Concomitant]
     Indication: INFECTIVE SPONDYLITIS
     Dosage: 4500 MG MILLIGRAM(S), 4 IN
     Route: 042
     Dates: start: 20141027, end: 20141029
  12. VANCOMYCIN HCL [Concomitant]
     Active Substance: VANCOMYCIN HYDROCHLORIDE
     Dosage: 700 MG MILLIGRAM(S) 2 IN
     Route: 042
     Dates: start: 20141112, end: 20141113
  13. MEROPENEM. [Concomitant]
     Active Substance: MEROPENEM
     Indication: PNEUMONIA
     Dosage: 1000 MG, 2 IN
     Route: 042
     Dates: start: 20141129, end: 20141201
  14. CYCIN [Concomitant]
     Indication: INFECTIVE SPONDYLITIS
     Dosage: 500 MG, 2 IN
     Route: 048
     Dates: start: 20141014, end: 20141022
  15. TAPOCIN [Concomitant]
     Indication: PNEUMONIA
     Dosage: 344 MG, 1 IN
     Route: 042
     Dates: start: 20141130, end: 20141130
  16. TRIZELE [Concomitant]
     Active Substance: METRONIDAZOLE
     Indication: PNEUMONIA
     Dosage: 500 MG, 3 IN
     Route: 042
     Dates: start: 20141127, end: 20141129
  17. MAXIPIME [Concomitant]
     Active Substance: CEFEPIME HYDROCHLORIDE
     Indication: INFECTIVE SPONDYLITIS
     Dosage: 2000 MG, 3 IN
     Route: 042
     Dates: start: 20141028, end: 20141125
  18. SPORANOX [Concomitant]
     Active Substance: ITRACONAZOLE\SODIUM CHLORIDE
     Indication: PROPHYLAXIS
     Dosage: 100 MG, 2 IN
     Route: 048
     Dates: start: 20141008, end: 20141022
  19. VANCOMYCIN HCL [Concomitant]
     Active Substance: VANCOMYCIN HYDROCHLORIDE
     Indication: PNEUMONIA
     Dosage: 1000 MG MILLIGRAM(S), 2 IN
     Route: 042
     Dates: start: 20141025, end: 20141027
  20. COMBICIN [Concomitant]
     Indication: PNEUMONIA
     Dosage: 2250 MG, UNK
     Route: 042
     Dates: start: 20141027, end: 20141029

REACTIONS (6)
  - Subdural haematoma [Not Recovered/Not Resolved]
  - Urticaria [Recovered/Resolved]
  - Vomiting [Recovered/Resolved]
  - Radius fracture [Not Recovered/Not Resolved]
  - Ulna fracture [Not Recovered/Not Resolved]
  - Pneumonia [Not Recovered/Not Resolved]

NARRATIVE: CASE EVENT DATE: 20141010
